FAERS Safety Report 5765592-9 (Version None)
Quarter: 2008Q2

REPORT INFORMATION
  Report Type: 
  Country: None (occurrence: None)
  Receive Date: 20080605
  Receipt Date: 20080521
  Transmission Date: 20081010
  Serious: Yes (Other)
  Sender: FDA-Public Use
  Company Number: E2090-00438-SPO-DE

PATIENT
  Age: 49 Year
  Sex: Male
  Weight: 70 kg

DRUGS (3)
  1. ZONEGRAN [Suspect]
     Indication: EPILEPSY
     Dosage: 50 MG, 2 IN 1 D, ORAL
     Route: 048
     Dates: start: 20080229, end: 20080311
  2. OXCARBAZEPINE [Suspect]
     Indication: EPILEPSY
     Dosage: 1200 MG, 2 IN 1 D, ORAL
     Route: 048
  3. INSULIN (INSULIN) [Concomitant]

REACTIONS (2)
  - BLOOD GLUCOSE FLUCTUATION [None]
  - DRUG INTERACTION [None]
